FAERS Safety Report 10428592 (Version 4)
Quarter: 2014Q4

REPORT INFORMATION
  Report Type: Spontaneous
  Country: US (occurrence: US)
  Receive Date: 20140903
  Receipt Date: 20141209
  Transmission Date: 20150528
  Serious: No
  Sender: FDA-Public Use
  Company Number: US-PFIZER INC-2014244508

PATIENT
  Age: 75 Year
  Sex: Male

DRUGS (23)
  1. LIPITOR [Suspect]
     Active Substance: ATORVASTATIN CALCIUM
     Indication: BLOOD CHOLESTEROL INCREASED
     Dosage: 80 MG, UNK
     Dates: start: 199909
  2. SPIRONOLACTONE. [Concomitant]
     Active Substance: SPIRONOLACTONE
     Dosage: 25 MG, 1X/DAY
     Dates: start: 201409
  3. TRAMADOL HYDROCHLORIDE. [Concomitant]
     Active Substance: TRAMADOL HYDROCHLORIDE
     Dosage: 50 MG, THREE TIMES A DAY AS NEEDED
     Dates: start: 2004
  4. PREDNISONE. [Concomitant]
     Active Substance: PREDNISONE
     Indication: GOUT
     Dosage: 20 MG TWO TABLETS PER DAY AS NEEDED
  5. COMADIN [Concomitant]
     Dosage: 5 MG, NIGHTLY
     Dates: start: 200612
  6. CALCITRIOL. [Concomitant]
     Active Substance: CALCITRIOL
     Dosage: 0.25 ?G, EVERY MONDAY/WEDNESDAY/FRIDAY
     Dates: start: 201004
  7. IMDUR [Concomitant]
     Active Substance: ISOSORBIDE MONONITRATE
     Dosage: 120 MG, 1X/DAY
  8. VITAMIN D2 [Concomitant]
     Active Substance: ERGOCALCIFEROL
     Dosage: 1.25 MG (50000 UNITS), WEEKLY (AFTERNOON)
     Dates: start: 2002
  9. ENDURE [Concomitant]
     Dosage: 60 MG, UNK
     Dates: start: 198709
  10. LIPITOR [Suspect]
     Active Substance: ATORVASTATIN CALCIUM
     Indication: CARDIOVASCULAR EVENT PROPHYLAXIS
     Dosage: 80 MG, DAILY
     Dates: start: 1995
  11. LIPITOR [Suspect]
     Active Substance: ATORVASTATIN CALCIUM
     Dosage: 40 MG (CUT 80 MG, HALF 80 MG), NIGHTLY
     Dates: start: 200612
  12. COREG [Concomitant]
     Active Substance: CARVEDILOL
     Dosage: 25 MG, THREE TIMES A DAY AS NEEDED
     Dates: start: 198709
  13. TORASEMIDE [Concomitant]
     Active Substance: TORSEMIDE
     Dosage: 20 MG, 1X/DAY
     Dates: start: 199909
  14. CALCITONIN [Concomitant]
     Active Substance: CALCITONIN
     Dosage: 200 IU/SPRAY, PER NIGHT AT BEDTIME
  15. PLAVIX [Concomitant]
     Active Substance: CLOPIDOGREL BISULFATE
     Dosage: 75 MG, NIGHTLY
     Dates: start: 200612
  16. CAPTOPRIL. [Concomitant]
     Active Substance: CAPTOPRIL
     Dosage: 25 MG, 3X/DAY
     Dates: start: 198709
  17. ALLOPURINOL. [Concomitant]
     Active Substance: ALLOPURINOL
     Dosage: 600 MG, 1X/DAY
     Dates: start: 201012
  18. NITROGLYCERIN. [Concomitant]
     Active Substance: NITROGLYCERIN
     Dosage: 0.4 MG, (AS NEEDED)
  19. FLUTICON [Concomitant]
     Dosage: 0.05% CREAM AS NEEDED
  20. COLCHICINE. [Concomitant]
     Active Substance: COLCHICINE
     Indication: GOUT
     Dosage: 0.6 MG, THREE TIMES DAILY AS NEEDED
  21. SYSTANE (HYPROMELLOSE 2910 (4000 MPA.S)) [Concomitant]
     Active Substance: HYPROMELLOSE 2910 (4000 MPA.S)
     Dosage: ONE OR TWO DAILY
  22. SYNTHROID [Concomitant]
     Active Substance: LEVOTHYROXINE SODIUM
     Dosage: 50 ?G, 1X/DAY
     Dates: start: 2009
  23. TEMAZEPAM. [Concomitant]
     Active Substance: TEMAZEPAM
     Dosage: 30 MG, PER NIGHT AT BEDTIME
     Dates: start: 2004

REACTIONS (1)
  - Burning sensation [Recovering/Resolving]
